FAERS Safety Report 7040486-X (Version None)
Quarter: 2010Q4

REPORT INFORMATION
  Report Type: 
  Country: None (occurrence: None)
  Receive Date: 20101012
  Receipt Date: 20100920
  Transmission Date: 20110411
  Serious: Yes (Other)
  Sender: FDA-Public Use
  Company Number: PHEH2007US13432

PATIENT
  Sex: Female

DRUGS (7)
  1. AREDIA [Suspect]
     Indication: BREAST CANCER
     Dosage: UNK
     Dates: start: 20020416, end: 20020701
  2. ZOMETA [Suspect]
     Indication: BREAST CANCER
     Dosage: UNK
     Dates: start: 20020701
  3. FEMARA [Concomitant]
  4. ZOLADEX [Concomitant]
  5. LORTAB [Concomitant]
  6. COUMADIN [Concomitant]
  7. EFFEXOR [Concomitant]
     Indication: HOT FLUSH

REACTIONS (43)
  - ANHEDONIA [None]
  - ANXIETY [None]
  - ARTHROPATHY [None]
  - ASCITES [None]
  - ATELECTASIS [None]
  - BONE LESION [None]
  - BONE SWELLING [None]
  - DEFORMITY [None]
  - DEPRESSION [None]
  - EAR PAIN [None]
  - EMOTIONAL DISTRESS [None]
  - FACIAL NEURALGIA [None]
  - GALLBLADDER DISORDER [None]
  - HEADACHE [None]
  - HEPATIC STEATOSIS [None]
  - HIATUS HERNIA [None]
  - HYDRONEPHROSIS [None]
  - HYPOAESTHESIA [None]
  - HYPOAESTHESIA FACIAL [None]
  - HYPOPHAGIA [None]
  - IMPAIRED HEALING [None]
  - INTRACRANIAL ANEURYSM [None]
  - INTUSSUSCEPTION [None]
  - LUNG NEOPLASM [None]
  - LYMPHADENOPATHY [None]
  - MALIGNANT NEOPLASM PROGRESSION [None]
  - METASTASES TO LIVER [None]
  - MIGRAINE [None]
  - MUSCLE SPASMS [None]
  - NEPHROLITHIASIS [None]
  - OSTEOMYELITIS [None]
  - OSTEONECROSIS OF JAW [None]
  - OVARIAN CYST [None]
  - PAIN [None]
  - PARAESTHESIA [None]
  - PATHOLOGICAL FRACTURE [None]
  - PLEURAL EFFUSION [None]
  - SPLENOMEGALY [None]
  - SWELLING FACE [None]
  - THYROID CYST [None]
  - TOOTH ABSCESS [None]
  - TOOTH EXTRACTION [None]
  - UTERINE LEIOMYOMA [None]
